FAERS Safety Report 14895763 (Version 1)
Quarter: 2018Q2

REPORT INFORMATION
  Report Type: Spontaneous
  Country: DE (occurrence: DE)
  Receive Date: 20180515
  Receipt Date: 20180515
  Transmission Date: 20180711
  Serious: Yes (Other)
  Sender: FDA-Public Use
  Company Number: DE-TEVA-2018-DE-893060

PATIENT
  Age: 54 Year
  Sex: Male
  Weight: 82 kg

DRUGS (1)
  1. AMOXICLAV [Suspect]
     Active Substance: AMOXICILLIN\CLAVULANIC ACID
     Indication: PNEUMONITIS
     Dosage: 1 DOSAGE FORMS DAILY;
     Route: 048
     Dates: start: 20180104, end: 20180114

REACTIONS (2)
  - Hypersensitivity vasculitis [Unknown]
  - Rash macular [Unknown]

NARRATIVE: CASE EVENT DATE: 20180112
